FAERS Safety Report 20584709 (Version 1)
Quarter: 2022Q1

REPORT INFORMATION
  Report Type: Spontaneous
  Country: US (occurrence: US)
  Receive Date: 20220311
  Receipt Date: 20220311
  Transmission Date: 20220424
  Serious: No
  Sender: FDA-Public Use
  Company Number: US-PFIZER INC-202200248551

PATIENT
  Sex: Male
  Weight: 100 kg

DRUGS (3)
  1. LOMOTIL [Suspect]
     Active Substance: ATROPINE SULFATE\DIPHENOXYLATE HYDROCHLORIDE
     Indication: Diarrhoea
     Dosage: UNK
  2. LENVIMA [Concomitant]
     Active Substance: LENVATINIB
     Indication: Drug therapy
     Dosage: 20 MG, DAILY
     Route: 048
     Dates: start: 202110
  3. LENVIMA [Concomitant]
     Active Substance: LENVATINIB
     Indication: Renal neoplasm

REACTIONS (2)
  - Abdominal distension [Unknown]
  - Muscle spasms [Unknown]
